FAERS Safety Report 8897227 (Version 1)
Quarter: 2012Q4

REPORT INFORMATION
  Report Type: 
  Country: US (occurrence: US)
  Receive Date: 20121108
  Receipt Date: 20121108
  Transmission Date: 20130627
  Serious: No
  Sender: FDA-Public Use
  Company Number: US-AMGEN-USASP2012029265

PATIENT
  Sex: Male
  Weight: 88.44 kg

DRUGS (8)
  1. ENBREL [Suspect]
     Indication: PRODUCT USED FOR UNKNOWN INDICATION
     Dosage: 50 mg, qwk
     Route: 058
  2. PREDNISONE [Concomitant]
     Dosage: 2.5 mg, UNK
  3. NORVASC [Concomitant]
     Dosage: 10 mg, UNK
  4. VICODIN [Concomitant]
  5. ASPIRIN [Concomitant]
     Dosage: 81 mg, UNK
  6. TOPROL [Concomitant]
     Dosage: 100 mg, UNK
  7. CRESTOR [Concomitant]
     Dosage: 10 mg, UNK
  8. METHOTREXATE [Concomitant]

REACTIONS (1)
  - Condition aggravated [Unknown]
